FAERS Safety Report 6443700-4 (Version None)
Quarter: 2009Q4

REPORT INFORMATION
  Report Type: 
  Country: None (occurrence: None)
  Receive Date: 20091117
  Receipt Date: 20091103
  Transmission Date: 20100525
  Serious: Yes (Hospitalization)
  Sender: FDA-Public Use
  Company Number: FR-MYLANLABS-2009S1019089

PATIENT
  Sex: Male

DRUGS (6)
  1. VORICONAZOLE [Suspect]
     Indication: INTENTIONAL OVERDOSE
     Dosage: 9.8G
  2. VORICONAZOLE [Suspect]
     Indication: ASPERGILLOSIS
     Dosage: 9.8G
  3. PREDNISOLONE [Suspect]
     Indication: INTENTIONAL OVERDOSE
     Dosage: 60MG
  4. SULFAMETHOXAZOLE [Suspect]
     Indication: INTENTIONAL OVERDOSE
     Dosage: 4G
  5. AZITHROMYCIN [Suspect]
     Indication: INTENTIONAL OVERDOSE
     Dosage: 2.5G
  6. BROMAZEPAM [Suspect]
     Indication: INTENTIONAL OVERDOSE
     Dosage: 120MG

REACTIONS (6)
  - AGITATION [None]
  - CONFUSIONAL STATE [None]
  - HEPATIC ENZYME INCREASED [None]
  - INTENTIONAL OVERDOSE [None]
  - RENAL FAILURE ACUTE [None]
  - RHABDOMYOLYSIS [None]
